FAERS Safety Report 6303438-0 (Version None)
Quarter: 2009Q3

REPORT INFORMATION
  Report Type: 
  Country: None (occurrence: None)
  Receive Date: 20090810
  Receipt Date: 20090728
  Transmission Date: 20100115
  Serious: Yes (Other)
  Sender: FDA-Public Use
  Company Number: PT-JNJFOC-20090709443

PATIENT
  Age: 17 Year
  Sex: Female

DRUGS (3)
  1. REMICADE [Suspect]
     Indication: CROHN'S DISEASE
     Dosage: 2 INFUSIONS ON UNSPECIFIED DATES
     Route: 042
  2. CLEMASTINE FUMARATE [Concomitant]
     Indication: PREMEDICATION
  3. CORTICOSTEROID [Concomitant]
     Indication: PREMEDICATION

REACTIONS (2)
  - HYPERSENSITIVITY [None]
  - INCORRECT STORAGE OF DRUG [None]
